FAERS Safety Report 11054146 (Version 2)
Quarter: 2015Q2

REPORT INFORMATION
  Report Type: Spontaneous
  Country: IT (occurrence: IT)
  Receive Date: 20150422
  Receipt Date: 20150507
  Transmission Date: 20150821
  Serious: Yes (Hospitalization)
  Sender: FDA-Public Use
  Company Number: IT-TEVA-555957ACC

PATIENT
  Age: 57 Year
  Sex: Female

DRUGS (4)
  1. SONIREM - 10 MG/ML GOCCE ORALI, SOLUZIONE - ITALFARMACO S.P.A. [Suspect]
     Active Substance: ZOLPIDEM TARTRATE
     Indication: DRUG ABUSE
     Dosage: 60 GTT TOTAL, ORAL DROPS, SOLUTION
     Route: 048
     Dates: start: 20150108, end: 20150108
  2. TOLEP - 300 MG COMPRESSE - NOVARTIS FARMA S.P.A. [Suspect]
     Active Substance: OXCARBAZEPINE
     Indication: DRUG ABUSE
     Dosage: 3600 MG TOTAL
     Route: 048
     Dates: start: 20150108, end: 20150108
  3. LIBRIUM [Suspect]
     Active Substance: CHLORDIAZEPOXIDE HYDROCHLORIDE
     Indication: DRUG ABUSE
     Dosage: 5 DF TOTAL
     Route: 048
     Dates: start: 20150108, end: 20150108
  4. CITALOPRAM [Suspect]
     Active Substance: CITALOPRAM HYDROBROMIDE
     Indication: DRUG ABUSE
     Dosage: 120 MG TOTAL
     Route: 048
     Dates: start: 20150108, end: 20150108

REACTIONS (3)
  - Drug abuse [Unknown]
  - Sopor [Unknown]
  - Intentional self-injury [Unknown]

NARRATIVE: CASE EVENT DATE: 20150108
